FAERS Safety Report 24982344 (Version 2)
Quarter: 2025Q3

REPORT INFORMATION
  Report Type: Report from Study
  Country: HN (occurrence: HN)
  Receive Date: 20250218
  Receipt Date: 20250816
  Transmission Date: 20251021
  Serious: No
  Sender: ALEXION PHARMACEUTICALS
  Company Number: HN-AstraZeneca-2019SE78652

PATIENT
  Age: 78 Year
  Sex: Female

DRUGS (1)
  1. NEXIUM [Suspect]
     Active Substance: ESOMEPRAZOLE MAGNESIUM
     Dosage: 20 MILLIGRAM, QD

REACTIONS (3)
  - Pain in extremity [Unknown]
  - Hypoacusis [Unknown]
  - Hypersensitivity [Unknown]
